FAERS Safety Report 4403444-7 (Version None)
Quarter: 2004Q3

REPORT INFORMATION
  Report Type: 
  Country: None (occurrence: None)
  Receive Date: 20040719
  Receipt Date: 20040706
  Transmission Date: 20050211
  Serious: Yes (Hospitalization, Other)
  Sender: FDA-Public Use
  Company Number: 2004045589

PATIENT
  Age: 52 Year
  Sex: Male
  Weight: 73.9363 kg

DRUGS (11)
  1. VIAGRA [Suspect]
     Indication: ERECTILE DYSFUNCTION
     Dates: start: 20000101
  2. NITROGLYCERIN [Suspect]
     Indication: CHEST PAIN
  3. ENALAPRIL MALEATE [Concomitant]
  4. DYAZIDE [Concomitant]
  5. CARDIAC THERAPY (CARDIAC THERAPY) [Concomitant]
  6. SALBUTAMOL (SALBUTAMOL) [Concomitant]
  7. ALL OTHER THERAPEUTIC PRODUCTS (ALL OTHER THERAPEUTIC PRODUCTS) [Concomitant]
  8. CODEINE (CODEINE) [Concomitant]
  9. LACTULOSE [Concomitant]
  10. POTASSIUM CHLORIDE [Concomitant]
  11. LISINOPRIL [Concomitant]

REACTIONS (10)
  - BALANCE DISORDER [None]
  - BLOOD PRESSURE DECREASED [None]
  - CHEST PAIN [None]
  - DIZZINESS [None]
  - DRUG INTERACTION [None]
  - FEELING HOT [None]
  - GAIT DISTURBANCE [None]
  - HEADACHE [None]
  - HYPERHIDROSIS [None]
  - SEXUAL DYSFUNCTION [None]
